FAERS Safety Report 9158722 (Version 1)
Quarter: 2013Q1

REPORT INFORMATION
  Report Type: Spontaneous
  Country: US (occurrence: US)
  Receive Date: 20130312
  Receipt Date: 20130312
  Transmission Date: 20140127
  Serious: No
  Sender: FDA-Public Use
  Company Number: US-TEVA-390572USA

PATIENT
  Age: 43 Year
  Sex: Female
  Weight: 59.02 kg

DRUGS (1)
  1. QNASL [Suspect]
     Indication: SEASONAL ALLERGY
     Route: 045
     Dates: start: 20130304

REACTIONS (2)
  - Ageusia [Not Recovered/Not Resolved]
  - Anosmia [Not Recovered/Not Resolved]
